FAERS Safety Report 8852760 (Version 2)
Quarter: 2012Q4

REPORT INFORMATION
  Report Type: 
  Country: US (occurrence: US)
  Receive Date: 20121022
  Receipt Date: 20121119
  Transmission Date: 20130627
  Serious: No
  Sender: FDA-Public Use
  Company Number: US-PFIZER INC-2012260534

PATIENT
  Age: 51 Year
  Sex: Female

DRUGS (1)
  1. TOVIAZ [Suspect]
     Indication: INCONTINENCE
     Dosage: UNK

REACTIONS (1)
  - Dry mouth [Unknown]
